FAERS Safety Report 15592925 (Version 2)
Quarter: 2018Q4

REPORT INFORMATION
  Report Type: Report from Study
  Country: None (occurrence: AU)
  Receive Date: 20181107
  Receipt Date: 20181114
  Transmission Date: 20190205
  Serious: Yes (Hospitalization)
  Sender: FDA-Public Use
  Company Number: AU-ABBVIE-18P-008-2540318-00

PATIENT
  Age: 68 Year
  Sex: Male

DRUGS (38)
  1. VENETOCLAX. [Suspect]
     Active Substance: VENETOCLAX
     Indication: ACUTE MYELOID LEUKAEMIA
     Route: 048
     Dates: start: 20180919
  2. AMBISOME [Concomitant]
     Active Substance: AMPHOTERICIN B
     Indication: ANTIFUNGAL PROPHYLAXIS
     Dates: start: 20180808, end: 20180822
  3. CEFEPIME [Concomitant]
     Active Substance: CEFEPIME HYDROCHLORIDE
     Indication: FEBRILE NEUTROPENIA
     Dates: start: 20180823, end: 20180903
  4. POSACONAZOLE [Concomitant]
     Active Substance: POSACONAZOLE
     Indication: ANTIFUNGAL PROPHYLAXIS
     Dates: start: 20180824, end: 20180912
  5. POSACONAZOLE [Concomitant]
     Active Substance: POSACONAZOLE
     Dates: start: 20181006
  6. NORADRENALINE [Concomitant]
     Active Substance: NOREPINEPHRINE
     Indication: HYPOTENSION
     Dates: start: 20181014, end: 20181014
  7. COLOXYL AND SENNA [Concomitant]
     Indication: CONSTIPATION
     Dates: start: 20180901
  8. FILGRASTIM [Concomitant]
     Active Substance: FILGRASTIM
     Dates: start: 20181029
  9. PARACETAMOL [Concomitant]
     Active Substance: ACETAMINOPHEN
     Indication: PRODUCT USED FOR UNKNOWN INDICATION
  10. XYLOCAINE VISCOUS [Concomitant]
     Active Substance: LIDOCAINE HYDROCHLORIDE
     Indication: MUCOSAL INFLAMMATION
     Dates: start: 20181029
  11. TARGIN [Concomitant]
     Active Substance: NALOXONE HYDROCHLORIDE\OXYCODONE HYDROCHLORIDE
     Indication: PHLEBITIS
  12. PREGABALIN. [Concomitant]
     Active Substance: PREGABALIN
     Indication: PHLEBITIS
     Dates: start: 20181107
  13. PROCHLORPERAZINE. [Concomitant]
     Active Substance: PROCHLORPERAZINE
     Indication: NAUSEA
     Dates: start: 20180813
  14. CYCLIZINE [Concomitant]
     Active Substance: CYCLIZINE
     Indication: NAUSEA
     Dates: start: 20180824
  15. ALLOPURINOL. [Concomitant]
     Active Substance: ALLOPURINOL
     Indication: PROPHYLAXIS
     Dates: start: 20180807, end: 20180817
  16. CEFEPIME [Concomitant]
     Active Substance: CEFEPIME HYDROCHLORIDE
     Indication: CULTURE NEGATIVE
     Dates: start: 20181014, end: 20181014
  17. CEFEPIME [Concomitant]
     Active Substance: CEFEPIME HYDROCHLORIDE
     Indication: FEBRILE NEUTROPENIA
  18. PENTHROX [Concomitant]
     Active Substance: METHOXYFLURANE
     Indication: ANALGESIC THERAPY
     Dates: start: 20180816, end: 20180816
  19. TRANEXAMIC ACID. [Concomitant]
     Active Substance: TRANEXAMIC ACID
     Indication: MUCOSAL INFLAMMATION
     Dates: start: 20181101, end: 20181107
  20. CYTARABINE. [Concomitant]
     Active Substance: CYTARABINE
     Indication: ACUTE MYELOID LEUKAEMIA
     Route: 042
     Dates: start: 20180926
  21. IDARUBICIN [Concomitant]
     Active Substance: IDARUBICIN
     Indication: ACUTE MYELOID LEUKAEMIA
     Route: 065
     Dates: start: 20180926
  22. CELLUFRESH [Concomitant]
     Indication: EYE IRRITATION
     Dates: start: 20180919
  23. VALACICLOVIR [Concomitant]
     Active Substance: VALACYCLOVIR HYDROCHLORIDE
     Indication: ANTIVIRAL PROPHYLAXIS
     Dates: start: 20180715
  24. FILGRASTIM [Concomitant]
     Active Substance: FILGRASTIM
     Indication: GRANULOCYTE COUNT DECREASED
     Dates: start: 20180830, end: 20180914
  25. FRAMYCETIN EYEDROPS [Concomitant]
     Indication: EYE IRRITATION
     Dates: start: 20180829, end: 20180906
  26. CIRPOFLOXACIN [Concomitant]
     Indication: NEUTROPENIC SEPSIS
     Dates: start: 20181018, end: 20181029
  27. TARGIN [Concomitant]
     Active Substance: NALOXONE HYDROCHLORIDE\OXYCODONE HYDROCHLORIDE
     Indication: MUCOSAL INFLAMMATION
     Dates: start: 20181029
  28. RANITIDINE. [Concomitant]
     Active Substance: RANITIDINE
     Indication: GASTROOESOPHAGEAL REFLUX PROPHYLAXIS
     Dates: start: 20180813
  29. SODIBIC [Concomitant]
     Indication: ANTIBIOTIC PROPHYLAXIS
     Dates: start: 20180808
  30. PROSETSYL [Concomitant]
     Indication: PROCTALGIA
     Dates: start: 20180831
  31. DIPROSONE CREAM [Concomitant]
     Indication: RASH
     Dates: start: 20180827
  32. AMBISOME [Concomitant]
     Active Substance: AMPHOTERICIN B
     Indication: ANTIVIRAL PROPHYLAXIS
     Dates: start: 20180914, end: 20181005
  33. CEPHALEX [Concomitant]
     Indication: CULTURE NEGATIVE
     Dates: start: 20180913, end: 20180918
  34. OXYCODONE [Concomitant]
     Active Substance: OXYCODONE
     Indication: PRODUCT USED FOR UNKNOWN INDICATION
  35. CETIRIZINE [Concomitant]
     Active Substance: CETIRIZINE HYDROCHLORIDE
     Indication: RASH
     Dates: start: 20180825
  36. CEFEPIME [Concomitant]
     Active Substance: CEFEPIME HYDROCHLORIDE
     Indication: ESCHERICHIA INFECTION
     Dates: start: 20181015, end: 20181018
  37. CEPHALEX [Concomitant]
     Indication: FEBRILE NEUTROPENIA
  38. CIRPOFLOXACIN [Concomitant]
     Indication: ESCHERICHIA SEPSIS

REACTIONS (1)
  - Neutropenic sepsis [Recovered/Resolved]

NARRATIVE: CASE EVENT DATE: 20181029
